FAERS Safety Report 4691253-3 (Version None)
Quarter: 2005Q2

REPORT INFORMATION
  Report Type: 
  Country: None (occurrence: None)
  Receive Date: 20050614
  Receipt Date: 20050601
  Transmission Date: 20051028
  Serious: Yes (Hospitalization, Other)
  Sender: FDA-Public Use
  Company Number: 2005085407

PATIENT
  Age: 83 Year
  Sex: Female
  Weight: 72.5755 kg

DRUGS (3)
  1. BEXTRA [Suspect]
     Indication: ARTHRITIS
     Dosage: 20 MG (20 MG, 1 IN 1 D), ORAL
     Route: 048
  2. PREDNSIONE (PREDNISONE) [Concomitant]
  3. OXYBUTYNIN CHLORIDE [Concomitant]

REACTIONS (1)
  - RASH PRURITIC [None]
